FAERS Safety Report 4853813-6 (Version None)
Quarter: 2005Q4

REPORT INFORMATION
  Report Type: 
  Country: None (occurrence: None)
  Receive Date: 20051212
  Receipt Date: 20051129
  Transmission Date: 20060501
  Serious: Yes (Disabling, Other)
  Sender: FDA-Public Use
  Company Number: 2005162912

PATIENT
  Age: 79 Year
  Sex: Female
  Weight: 70.7611 kg

DRUGS (5)
  1. NORVASC [Suspect]
     Indication: HYPERTENSION
  2. LIPITOR [Suspect]
     Indication: BLOOD CHOLESTEROL
     Dosage: (80 MG),
  3. CARDIZEM [Suspect]
     Indication: BLOOD PRESSURE
     Dosage: (25 MG,)
     Dates: start: 20050101, end: 20050101
  4. UNKNOWN SHOTS (DRUG,) [Suspect]
     Indication: ILL-DEFINED DISORDER
     Dates: start: 20050101
  5. HYZAAR [Concomitant]

REACTIONS (10)
  - CATARACT [None]
  - CONSTIPATION [None]
  - DIVERTICULUM [None]
  - DRUG INEFFECTIVE [None]
  - HEADACHE [None]
  - MYALGIA [None]
  - RENAL DISORDER [None]
  - RETINAL ARTERY OCCLUSION [None]
  - VISUAL ACUITY REDUCED [None]
  - VOMITING [None]
